FAERS Safety Report 15329998 (Version 1)
Quarter: 2018Q3

REPORT INFORMATION
  Report Type: Spontaneous
  Country: PT (occurrence: PT)
  Receive Date: 20180829
  Receipt Date: 20180829
  Transmission Date: 20181010
  Serious: Yes (Hospitalization, Other)
  Sender: FDA-Public Use
  Company Number: PHHY2018PT039932

PATIENT
  Age: 65 Year

DRUGS (2)
  1. AMOXICILLIN, CLAVULANATE [Suspect]
     Active Substance: AMOXICILLIN\CLAVULANATE POTASSIUM
     Indication: PNEUMONIA
     Route: 065
  2. AZITHROMYCIN ANHYDROUS. [Suspect]
     Active Substance: AZITHROMYCIN ANHYDROUS
     Indication: PNEUMONIA
     Route: 065

REACTIONS (5)
  - Pleural effusion [Recovering/Resolving]
  - Pyrexia [Recovering/Resolving]
  - Drug ineffective [Recovered/Resolved]
  - Pneumonia [Recovering/Resolving]
  - Condition aggravated [Recovered/Resolved]
